FAERS Safety Report 11219954 (Version 1)
Quarter: 2015Q2

REPORT INFORMATION
  Report Type: Spontaneous
  Country: US (occurrence: None)
  Receive Date: 20150624
  Receipt Date: 20150624
  Transmission Date: 20150821
  Serious: Yes (Hospitalization)
  Sender: FDA-Public Use
  Company Number: NSR_02143_2015

PATIENT
  Age: 53 Year
  Sex: Female

DRUGS (1)
  1. BACLOFEN. [Suspect]
     Active Substance: BACLOFEN
     Indication: SPINAL OPERATION

REACTIONS (9)
  - Hypotonia [None]
  - Hyporeflexia [None]
  - Status epilepticus [None]
  - Confusional state [None]
  - Overdose [None]
  - Unresponsive to stimuli [None]
  - Mydriasis [None]
  - Toxicity to various agents [None]
  - Pupillary light reflex tests abnormal [None]
